FAERS Safety Report 26133507 (Version 2)
Quarter: 2025Q4

REPORT INFORMATION
  Report Type: Report from Study
  Country: US (occurrence: US)
  Receive Date: 20251209
  Receipt Date: 20251216
  Transmission Date: 20260118
  Serious: Yes (Other)
  Sender: ROCHE
  Company Number: US-ROCHE-10000454074

PATIENT
  Age: 56 Year
  Sex: Male

DRUGS (1)
  1. ENSPRYNG [Suspect]
     Active Substance: SATRALIZUMAB-MWGE
     Indication: Demyelination
     Dosage: INJECT 120MG SUBCUTANEOUSLY EVERY 4 WEEKS
     Route: 058

REACTIONS (1)
  - Blindness [Unknown]
